FAERS Safety Report 4462159-X (Version None)
Quarter: 2004Q3

REPORT INFORMATION
  Report Type: 
  Country: None (occurrence: None)
  Receive Date: 20040924
  Receipt Date: 20040913
  Transmission Date: 20050211
  Serious: No
  Sender: FDA-Public Use
  Company Number: APP200400741

PATIENT
  Age: 65 Year
  Sex: Female

DRUGS (4)
  1. PAMIDRONATE DISODIUM INJECTION (PAMIDRONATE DISODIUM) [Suspect]
     Indication: METASTASES TO BONE
     Dosage: SEE IMAGE
     Dates: start: 20031006, end: 20031227
  2. PAMIDRONATE DISODIUM INJECTION (PAMIDRONATE DISODIUM) [Suspect]
     Indication: METASTASES TO BONE
     Dosage: SEE IMAGE
     Dates: start: 20040315, end: 20040315
  3. PAMIDRONATE DISODIUM INJECTION (PAMIDRONATE DISODIUM) [Suspect]
     Indication: METASTASES TO BONE
     Dosage: SEE IMAGE
     Dates: start: 20040510, end: 20040510
  4. ARIMIDEX [Concomitant]

REACTIONS (2)
  - OSTEOMYELITIS [None]
  - OSTEONECROSIS [None]
